FAERS Safety Report 6984772 (Version 3)
Quarter: 2014Q1

REPORT INFORMATION
  Report Type: Spontaneous
  Country: US (occurrence: US)
  Receive Date: 20090501
  Receipt Date: 20140324
  Transmission Date: 20141002
  Serious: Yes (Death, Hospitalization, Other)
  Sender: FDA-Public Use
  Company Number: US-ALEXION-A200800011

PATIENT
  Age: 38 Year
  Sex: Female
  Weight: 74 kg

DRUGS (12)
  1. SOLIRIS [Suspect]
     Indication: PAROXYSMAL NOCTURNAL HAEMOGLOBINURIA
     Dosage: 600 MG, SINGLE
     Route: 042
     Dates: start: 200710, end: 200710
  2. SOLIRIS [Suspect]
     Dosage: 900 MG, SINGLE
     Route: 042
     Dates: start: 20071226, end: 20071226
  3. SOLIRIS [Suspect]
     Dosage: 600 MG, SINGLE
     Route: 042
     Dates: start: 20080303, end: 20080303
  4. SOLIRIS [Suspect]
     Dosage: 600 MG, SINGLE
     Route: 042
     Dates: start: 20080310, end: 20080310
  5. SOLIRIS [Suspect]
     Dosage: 600 MG, SINGLE
     Route: 042
     Dates: start: 20080317, end: 20080317
  6. SOLIRIS [Suspect]
     Dosage: 600 MG, SINGLE
     Route: 042
     Dates: start: 20080324, end: 20080324
  7. SOLIRIS [Suspect]
     Dosage: 900 MG, SINGLE
     Route: 042
     Dates: start: 20080331, end: 20080331
  8. SOLIRIS [Suspect]
     Dosage: 900 MG, SINGLE
     Route: 042
     Dates: start: 20080417, end: 20080417
  9. SOLIRIS [Suspect]
     Dosage: 900 MG, SINGLE
     Route: 042
     Dates: start: 20080501, end: 20080501
  10. OXYCODONE [Concomitant]
     Indication: HIP ARTHROPLASTY
     Dosage: 5 MG, 2Q 4 HOURS
     Route: 048
  11. OXYCODONE [Concomitant]
     Indication: KNEE OPERATION
  12. BACLOFEN [Concomitant]
     Indication: RESTLESS LEGS SYNDROME
     Dosage: 20 MG, UNK
     Route: 048

REACTIONS (11)
  - Acute respiratory failure [Fatal]
  - Dehydration [Unknown]
  - Confusional state [Recovered/Resolved]
  - Blood potassium decreased [Recovered/Resolved]
  - Pelvic pain [Recovered/Resolved]
  - Urinary tract infection [Recovered/Resolved]
  - Rectal haemorrhage [Unknown]
  - Syncope [Recovered/Resolved]
  - Back pain [Unknown]
  - Transfusion [Unknown]
  - Treatment noncompliance [Recovered/Resolved]
